FAERS Safety Report 26156264 (Version 1)
Quarter: 2025Q4

REPORT INFORMATION
  Report Type: Spontaneous
  Country: US (occurrence: US)
  Receive Date: 20251215
  Receipt Date: 20251215
  Transmission Date: 20260117
  Serious: No
  Sender: ALCON
  Company Number: US-ALCON LABORATORIES-ALC2025US006420

PATIENT
  Age: 68 Year
  Sex: Female

DRUGS (4)
  1. ACOLTREMON [Suspect]
     Active Substance: ACOLTREMON
     Indication: Dry eye
     Dosage: ONE DROP IN BOTH EYES TWICE DAILY
     Route: 047
     Dates: start: 20251010, end: 20251017
  2. EPIPEN [Concomitant]
     Active Substance: EPINEPHRINE
     Indication: Product used for unknown indication
     Route: 065
  3. IYUZEH [Concomitant]
     Active Substance: LATANOPROST
     Indication: Product used for unknown indication
     Route: 065
  4. VITAMINS WITH MINERALS [Concomitant]
     Active Substance: MINERALS\VITAMINS
     Indication: Product used for unknown indication
     Dosage: UNK
     Route: 065

REACTIONS (4)
  - Headache [Unknown]
  - Palpitations [Unknown]
  - Trigeminal neuralgia [Not Recovered/Not Resolved]
  - Eye irritation [Unknown]
